FAERS Safety Report 4763802-8 (Version None)
Quarter: 2005Q3

REPORT INFORMATION
  Report Type: 
  Country: None (occurrence: None)
  Receive Date: 20050901
  Receipt Date: 20041208
  Transmission Date: 20060218
  Serious: Yes (Other)
  Sender: FDA-Public Use
  Company Number: 15686

PATIENT
  Age: 29 Year
  Sex: Female

DRUGS (6)
  1. PACLITAXEL [Suspect]
     Indication: BREAST CANCER METASTATIC
     Dosage: 150 MG IV
     Route: 042
  2. DECADRON [Concomitant]
  3. ZANTAC [Concomitant]
  4. CARBO [Concomitant]
  5. ANZEMET [Concomitant]
  6. BENADRYL [Concomitant]

REACTIONS (4)
  - DYSPNOEA [None]
  - FLUSHING [None]
  - HYPERSENSITIVITY [None]
  - NAUSEA [None]
